FAERS Safety Report 18706825 (Version 1)
Quarter: 2021Q1

REPORT INFORMATION
  Report Type: Spontaneous
  Country: US (occurrence: US)
  Receive Date: 20210106
  Receipt Date: 20210106
  Transmission Date: 20210419
  Serious: Yes (Hospitalization, Other)
  Sender: FDA-Public Use
  Company Number: US-REGENERON PHARMACEUTICALS, INC.-2020-97908

PATIENT

DRUGS (2)
  1. PRALUENT [Suspect]
     Active Substance: ALIROCUMAB
     Indication: HYPERCHOLESTEROLAEMIA
     Dosage: 75 MG/ML, Q2W
     Route: 058
  2. COREG [Concomitant]
     Active Substance: CARVEDILOL
     Indication: MYOCARDIAL INFARCTION

REACTIONS (4)
  - Myocardial infarction [Unknown]
  - Loss of consciousness [Unknown]
  - Injury associated with device [Unknown]
  - Overdose [Unknown]

NARRATIVE: CASE EVENT DATE: 2020
